FAERS Safety Report 10482219 (Version 1)
Quarter: 2014Q3

REPORT INFORMATION
  Report Type: Other
  Country: DE (occurrence: DE)
  Receive Date: 20140929
  Receipt Date: 20140929
  Transmission Date: 20150326
  Serious: Yes (Congenital Anomaly, Other)
  Sender: FDA-Public Use
  Company Number: DE-MYLANLABS-2014M1004983

PATIENT

DRUGS (4)
  1. LAMOTRIGIN [Suspect]
     Active Substance: LAMOTRIGINE
     Indication: EPILEPSY
     Dosage: 350 MG, QD (250-0-100MG/D)
     Route: 064
     Dates: start: 20120921, end: 20130605
  2. RIVOTRIL [Concomitant]
     Active Substance: CLONAZEPAM
     Indication: EPILEPSY
     Dosage: 2 [MG ]/ ON DEMAND
     Route: 064
  3. FOLIO [Concomitant]
     Active Substance: FOLIC ACID
     Indication: VITAMIN SUPPLEMENTATION
     Dosage: 0.4 [MG/D ]
     Route: 064
  4. VIMPAT [Suspect]
     Active Substance: LACOSAMIDE
     Indication: EPILEPSY
     Dosage: 450 [MG/D ]/ INCREASED TO 150-0-300
     Route: 064
     Dates: start: 20120921, end: 20130605

REACTIONS (4)
  - Congenital melanocytic naevus [Not Recovered/Not Resolved]
  - Neonatal respiratory distress syndrome [Recovered/Resolved]
  - Foetal exposure during pregnancy [Unknown]
  - Hypothermia neonatal [Recovered/Resolved]

NARRATIVE: CASE EVENT DATE: 20130605
